FAERS Safety Report 9540629 (Version 1)
Quarter: 2013Q3

REPORT INFORMATION
  Report Type: Spontaneous
  Country: BE (occurrence: BE)
  Receive Date: 20130920
  Receipt Date: 20130920
  Transmission Date: 20140515
  Serious: Yes (Other)
  Sender: FDA-Public Use
  Company Number: PHHY2013BE103144

PATIENT
  Sex: Female

DRUGS (1)
  1. AMOXICILLIN SANDOZ [Suspect]
     Dosage: 1000 MG, UNK
     Route: 048

REACTIONS (3)
  - Swelling face [Unknown]
  - Bone swelling [Unknown]
  - Drug intolerance [Unknown]
